FAERS Safety Report 14372229 (Version 1)
Quarter: 2018Q1

REPORT INFORMATION
  Report Type: Spontaneous
  Country: US (occurrence: US)
  Receive Date: 20180110
  Receipt Date: 20180110
  Transmission Date: 20180509
  Serious: Yes (Other)
  Sender: FDA-Public Use
  Company Number: US-MYLANLABS-2017M1083390

PATIENT
  Age: 31 Year
  Sex: Female

DRUGS (1)
  1. METHADONE [Suspect]
     Active Substance: METHADONE HYDROCHLORIDE
     Indication: MYOFASCIAL PAIN SYNDROME
     Dosage: 10MG DAILY AND THEN TAPERED METHADONE TO 10 MG PER DAY
     Route: 065

REACTIONS (1)
  - Hyperaesthesia [Recovering/Resolving]
